FAERS Safety Report 19479103 (Version 1)
Quarter: 2021Q3

REPORT INFORMATION
  Report Type: Report from Study
  Country: GB (occurrence: GB)
  Receive Date: 20210701
  Receipt Date: 20210701
  Transmission Date: 20211014
  Serious: No
  Sender: FDA-Public Use
  Company Number: GB-JNJFOC-20210627116

PATIENT
  Sex: Female

DRUGS (18)
  1. STELARA [Suspect]
     Active Substance: USTEKINUMAB
     Indication: CROHN^S DISEASE
     Dosage: STRENGTH: 90.00 MG/ML
     Route: 058
     Dates: start: 20190108
  2. STELARA [Suspect]
     Active Substance: USTEKINUMAB
  3. STELARA [Suspect]
     Active Substance: USTEKINUMAB
  4. STELARA [Suspect]
     Active Substance: USTEKINUMAB
  5. STELARA [Suspect]
     Active Substance: USTEKINUMAB
  6. STELARA [Suspect]
     Active Substance: USTEKINUMAB
  7. STELARA [Suspect]
     Active Substance: USTEKINUMAB
  8. STELARA [Suspect]
     Active Substance: USTEKINUMAB
  9. STELARA [Suspect]
     Active Substance: USTEKINUMAB
  10. STELARA [Suspect]
     Active Substance: USTEKINUMAB
     Indication: CROHN^S DISEASE
     Dosage: STRENGTH: 90.00 MG/ML
     Route: 058
  11. STELARA [Suspect]
     Active Substance: USTEKINUMAB
  12. STELARA [Suspect]
     Active Substance: USTEKINUMAB
  13. STELARA [Suspect]
     Active Substance: USTEKINUMAB
  14. STELARA [Suspect]
     Active Substance: USTEKINUMAB
     Indication: CROHN^S DISEASE
     Dosage: STRENGTH: 90.00 MG/ML
     Route: 058
  15. STELARA [Suspect]
     Active Substance: USTEKINUMAB
  16. STELARA [Suspect]
     Active Substance: USTEKINUMAB
  17. STELARA [Suspect]
     Active Substance: USTEKINUMAB
  18. STELARA [Suspect]
     Active Substance: USTEKINUMAB

REACTIONS (5)
  - Device deployment issue [Unknown]
  - Device issue [Unknown]
  - Needle issue [Unknown]
  - Underdose [Unknown]
  - Injury associated with device [Unknown]
